FAERS Safety Report 17349193 (Version 12)
Quarter: 2023Q2

REPORT INFORMATION
  Report Type: Report from Study
  Country: SK (occurrence: SK)
  Receive Date: 20200130
  Receipt Date: 20230614
  Transmission Date: 20230722
  Serious: Yes (Death, Life-Threatening, Hospitalization)
  Sender: FDA-Public Use
  Company Number: NVSC2020SK014539

PATIENT
  Age: 76 Year
  Sex: Female
  Weight: 65 kg

DRUGS (22)
  1. ILARIS [Suspect]
     Active Substance: CANAKINUMAB
     Indication: Non-small cell lung cancer
     Dosage: UNK
     Route: 058
     Dates: start: 20191227, end: 20200120
  2. PEMBROLIZUMAB [Suspect]
     Active Substance: PEMBROLIZUMAB
     Indication: Non-small cell lung cancer
     Dosage: 200 MG
     Route: 042
     Dates: start: 20191227, end: 20200120
  3. PEMETREXED DISODIUM [Suspect]
     Active Substance: PEMETREXED DISODIUM
     Indication: Non-small cell lung cancer
     Dosage: 830 MG
     Route: 042
     Dates: start: 20191227, end: 20200120
  4. CISPLATIN [Suspect]
     Active Substance: CISPLATIN
     Indication: Non-small cell lung cancer
     Dosage: 124.5 MG
     Route: 042
     Dates: start: 20191227, end: 20200120
  5. PREDNISONE [Suspect]
     Active Substance: PREDNISONE
     Indication: Renal failure
     Dosage: UNK
     Route: 065
     Dates: start: 20200115, end: 20200119
  6. DIMETHINDENE [Concomitant]
     Active Substance: DIMETHINDENE
     Indication: Erythema
     Dosage: UNK
     Route: 065
     Dates: start: 20200102, end: 20200108
  7. POTASSIUM CHLORIDE [Concomitant]
     Active Substance: POTASSIUM CHLORIDE
     Indication: Renal failure
     Dosage: UNK
     Route: 065
     Dates: start: 20200114, end: 20200120
  8. ATROPINE SULFATE\DIPHENOXYLATE HYDROCHLORIDE [Concomitant]
     Active Substance: ATROPINE SULFATE\DIPHENOXYLATE HYDROCHLORIDE
     Indication: Diarrhoea
     Dosage: UNK
     Route: 065
     Dates: start: 20200110, end: 20200113
  9. POTASSIUM CHLORIDE [Concomitant]
     Active Substance: POTASSIUM CHLORIDE
     Indication: Renal failure
     Dosage: UNK
     Route: 065
     Dates: start: 20200114, end: 20200119
  10. CALTRATE [Concomitant]
     Active Substance: CALCIUM CARBONATE
     Indication: Renal failure
     Dosage: UNK
     Route: 065
     Dates: start: 20200114, end: 20200119
  11. CALCIUM GLUCONICUM [Concomitant]
     Indication: Renal failure
     Dosage: UNK
     Route: 065
     Dates: start: 20200114, end: 20200119
  12. SODIUM CHLORIDE [Concomitant]
     Active Substance: SODIUM CHLORIDE
     Indication: Hypotension
     Dosage: UNK
     Route: 065
     Dates: start: 20200109, end: 20200109
  13. SODIUM CHLORIDE [Concomitant]
     Active Substance: SODIUM CHLORIDE
     Indication: Renal failure
     Dosage: UNK
     Route: 065
     Dates: start: 20200114
  14. OMEPRAZOLE [Concomitant]
     Active Substance: OMEPRAZOLE
     Indication: Prophylaxis against gastrointestinal ulcer
     Dosage: UNK
     Route: 065
     Dates: start: 20200115, end: 20200119
  15. INSULIN NOS [Concomitant]
     Active Substance: INSULIN NOS
     Indication: Diabetes mellitus
     Dosage: UNK
     Route: 065
     Dates: start: 20200115
  16. ALLOPURINOL [Concomitant]
     Active Substance: ALLOPURINOL
     Indication: Prophylaxis
     Dosage: UNK
     Route: 065
     Dates: start: 2009, end: 20200119
  17. ROSUVASTATIN CALCIUM [Concomitant]
     Active Substance: ROSUVASTATIN CALCIUM
     Indication: Hyperlipidaemia
     Dosage: UNK
     Route: 065
     Dates: start: 2009, end: 20200119
  18. PIOGLITAZONE HYDROCHLORIDE [Concomitant]
     Active Substance: PIOGLITAZONE HYDROCHLORIDE
     Indication: Diabetes mellitus
     Dosage: UNK
     Route: 065
     Dates: start: 2001, end: 20200119
  19. NADROPARIN CALCIUM [Concomitant]
     Active Substance: NADROPARIN CALCIUM
     Indication: Thrombosis
     Dosage: UNK
     Route: 065
     Dates: start: 20191009, end: 20200120
  20. METOPROLOL [Concomitant]
     Active Substance: METOPROLOL
     Indication: Hypertension
     Dosage: UNK
     Route: 065
     Dates: start: 20200117, end: 20200119
  21. CONTROLOC [Concomitant]
     Active Substance: PANTOPRAZOLE SODIUM
     Indication: Prophylaxis against gastrointestinal ulcer
     Dosage: UNK
     Route: 065
     Dates: start: 20200119
  22. KANAVIT [Concomitant]
     Indication: Haemorrhage prophylaxis
     Dosage: UNK
     Route: 065
     Dates: start: 20191129

REACTIONS (1)
  - Pneumonia [Fatal]

NARRATIVE: CASE EVENT DATE: 20200119
